FAERS Safety Report 14489760 (Version 1)
Quarter: 2018Q1

REPORT INFORMATION
  Report Type: Spontaneous
  Country: CN (occurrence: CN)
  Receive Date: 20180205
  Receipt Date: 20180205
  Transmission Date: 20180509
  Serious: Yes (Hospitalization, Other)
  Sender: FDA-Public Use
  Company Number: CN-MYLANLABS-2018M1007149

PATIENT
  Age: 46 Year
  Sex: Male

DRUGS (4)
  1. UROKINASE [Suspect]
     Active Substance: UROKINASE
     Dosage: 100U AT 16:00
     Route: 042
     Dates: start: 20170207
  2. ADRENALIN                          /00003901/ [Concomitant]
     Active Substance: EPINEPHRINE
     Indication: CARDIAC ARREST
     Dosage: 1 MG
     Route: 042
  3. HEPARIN [Suspect]
     Active Substance: HEPARIN SODIUM
     Indication: PRODUCT USED FOR UNKNOWN INDICATION
     Dosage: 600 U/H
     Route: 065
     Dates: start: 20170207
  4. UROKINASE [Suspect]
     Active Substance: UROKINASE
     Indication: PRODUCT USED FOR UNKNOWN INDICATION
     Dosage: 50U AT 15:20
     Route: 042
     Dates: start: 20170207

REACTIONS (4)
  - Shock haemorrhagic [Recovering/Resolving]
  - Haematuria [Recovering/Resolving]
  - Gastrointestinal haemorrhage [Recovering/Resolving]
  - Anaemia [Recovering/Resolving]

NARRATIVE: CASE EVENT DATE: 20170208
